FAERS Safety Report 9228500 (Version 2)
Quarter: 2013Q2

REPORT INFORMATION
  Report Type: Spontaneous
  Country: JP (occurrence: JP)
  Receive Date: 20130412
  Receipt Date: 20130503
  Transmission Date: 20140414
  Serious: Yes (Other)
  Sender: FDA-Public Use
  Company Number: JP-ROCHE-1213744

PATIENT
  Age: 67 Year
  Sex: Male
  Weight: 65 kg

DRUGS (4)
  1. XELODA [Suspect]
     Indication: RECTAL CANCER RECURRENT
     Dosage: IT IS ONE ADMINISTERING WEEKLY HOLIDAY MEDICINE FOR 1800MG IN THE MORNING, 1500MG IN THE EVENING,
     Route: 048
     Dates: start: 20121112, end: 2013
  2. XELODA [Suspect]
     Indication: RECTAL CANCER RECURRENT
     Dosage: IT IS ONE ADMINISTERING WEEKLY HOLIDAY MEDICINE FOR 1200MG IN THE MORNING, 1500?MG IN THE EVENING,
     Route: 048
     Dates: start: 2013, end: 20130325
  3. AVASTIN [Suspect]
     Indication: RECTAL CANCER RECURRENT
     Route: 041
     Dates: start: 20121112, end: 20130319
  4. ELPLAT [Suspect]
     Indication: RECTAL CANCER RECURRENT
     Route: 041
     Dates: start: 20121112, end: 20130319

REACTIONS (1)
  - Lung disorder [Recovering/Resolving]
